FAERS Safety Report 8936302 (Version 1)
Quarter: 2012Q4

REPORT INFORMATION
  Report Type: 
  Country: US (occurrence: US)
  Receive Date: 20121130
  Receipt Date: 20121130
  Transmission Date: 20130627
  Serious: No
  Sender: FDA-Public Use
  Company Number: US-ABBOTT-12P-163-0973825-00

PATIENT
  Age: 66 Year
  Sex: Male
  Weight: 121.67 kg

DRUGS (7)
  1. ANDROGEL 1.62% [Suspect]
     Indication: BLOOD TESTOSTERONE DECREASED
     Dosage: 1 in 1 Day, in the morning
     Route: 061
     Dates: start: 20120827
  2. DETROL [Concomitant]
     Indication: POLLAKIURIA
     Dates: start: 201204
  3. FINASTERIDE [Concomitant]
     Indication: PROSTATOMEGALY
     Dates: end: 2011
  4. LISINOPRIL [Concomitant]
     Indication: BLOOD PRESSURE
  5. METFORMIN [Concomitant]
     Indication: TYPE 2 DIABETES MELLITUS
  6. PRAVASTATIN [Concomitant]
     Indication: BLOOD CHOLESTEROL
  7. WARFARIN [Concomitant]
     Indication: ATRIAL FIBRILLATION

REACTIONS (1)
  - Nocturia [Not Recovered/Not Resolved]
